FAERS Safety Report 9373216 (Version 1)
Quarter: 2013Q2

REPORT INFORMATION
  Report Type: Report from Study
  Country: US (occurrence: US)
  Receive Date: 20130627
  Receipt Date: 20130627
  Transmission Date: 20140414
  Serious: Yes (Other)
  Sender: FDA-Public Use
  Company Number: US-ABBOTT-13P-163-1108315-00

PATIENT
  Sex: Female
  Weight: 93.52 kg

DRUGS (1)
  1. CREON [Suspect]
     Indication: FAMILIAL RISK FACTOR
     Dosage: 2 - 6000 UNIT CAPS TID WITH MEALS
     Dates: start: 2003

REACTIONS (5)
  - Renal failure [Unknown]
  - Asthenia [Not Recovered/Not Resolved]
  - Thinking abnormal [Not Recovered/Not Resolved]
  - Skin papilloma [Not Recovered/Not Resolved]
  - Fatigue [Not Recovered/Not Resolved]
